FAERS Safety Report 5032955-9 (Version None)
Quarter: 2006Q2

REPORT INFORMATION
  Report Type: 
  Country: None (occurrence: None)
  Receive Date: 20060428
  Receipt Date: 20051028
  Transmission Date: 20061013
  Serious: Yes (Life-Threatening, Hospitalization, Other)
  Sender: FDA-Public Use
  Company Number: 200511720BBE

PATIENT
  Age: 42 Year
  Sex: Female
  Weight: 116 kg

DRUGS (10)
  1. GAMUNEX [Suspect]
     Indication: IDIOPATHIC THROMBOCYTOPENIC PURPURA
     Dosage: 25 G, INTRAVENOUS
     Route: 042
     Dates: start: 20050813, end: 20050816
  2. GAMUNEX [Suspect]
     Indication: IDIOPATHIC THROMBOCYTOPENIC PURPURA
     Dosage: 25 G, INTRAVENOUS
     Route: 042
     Dates: start: 20050822, end: 20050826
  3. GAMUNEX [Suspect]
     Dates: start: 20050813, end: 20050816
  4. GAMUNEX [Suspect]
     Dates: start: 20050822, end: 20050826
  5. EFFEXOR [Concomitant]
  6. LITHIUM CARBONATE [Concomitant]
  7. SYNTHROID [Concomitant]
  8. CIPROLAX [Concomitant]
  9. IMOVANE [Concomitant]
  10. PREDNISONE [Concomitant]

REACTIONS (12)
  - BLOOD BILIRUBIN INCREASED [None]
  - BLOOD LACTATE DEHYDROGENASE INCREASED [None]
  - COOMBS DIRECT TEST [None]
  - COOMBS DIRECT TEST POSITIVE [None]
  - DYSPNOEA [None]
  - HAEMOGLOBIN DECREASED [None]
  - HAEMOLYTIC ANAEMIA [None]
  - HAPTOGLOBIN DECREASED [None]
  - JAUNDICE [None]
  - PALPITATIONS [None]
  - POLYCHROMASIA [None]
  - RED BLOOD CELL SPHEROCYTES PRESENT [None]
